FAERS Safety Report 20054307 (Version 1)
Quarter: 2021Q4

REPORT INFORMATION
  Report Type: Other
  Country: US (occurrence: US)
  Receive Date: 20211110
  Receipt Date: 20211110
  Transmission Date: 20220303
  Serious: Yes (Hospitalization)
  Sender: FDA-Public Use
  Company Number: US-UROVANT SCIENCES GMBH-202111-URV-000636

PATIENT
  Sex: Male
  Weight: 74.83 kg

DRUGS (1)
  1. GEMTESA [Suspect]
     Active Substance: VIBEGRON
     Indication: Hypertonic bladder
     Dosage: UNKNOWN
     Route: 048
     Dates: start: 20211017

REACTIONS (4)
  - Incontinence [Unknown]
  - Blood pressure decreased [Unknown]
  - Dehydration [Unknown]
  - Fall [Unknown]
